FAERS Safety Report 21400882 (Version 1)
Quarter: 2022Q4

REPORT INFORMATION
  Report Type: Other
  Country: IN (occurrence: None)
  Receive Date: 20221003
  Receipt Date: 20221003
  Transmission Date: 20230113
  Serious: Yes (Death)
  Sender: FDA-Public Use
  Company Number: IN-ROCHE-3189347

PATIENT
  Age: 65 Year
  Sex: Male

DRUGS (16)
  1. CELLCEPT [Suspect]
     Active Substance: MYCOPHENOLATE MOFETIL
     Indication: Renal transplant
     Route: 048
     Dates: start: 20161224, end: 20220609
  2. CEFTUM (INDIA) [Concomitant]
  3. PANTOCID DSR [Concomitant]
  4. ONDEM MD [Concomitant]
  5. EPLERENONE [Concomitant]
     Active Substance: EPLERENONE
  6. EVEROLIMUS [Concomitant]
     Active Substance: EVEROLIMUS
  7. TACROLIMUS [Concomitant]
     Active Substance: TACROLIMUS
  8. FENTANYL [Concomitant]
     Active Substance: FENTANYL
  9. HUMALOG [Concomitant]
     Active Substance: INSULIN LISPRO
     Dosage: 12 UNITS, 10 UNITS, 8 UNITS
     Route: 058
  10. ETORICOXIB [Concomitant]
     Active Substance: ETORICOXIB
  11. HYLO [Concomitant]
  12. CREMAFFIN PLUS [Concomitant]
  13. URIMAX D [Concomitant]
     Dosage: 0.4
  14. DUPHALAC [Concomitant]
     Active Substance: LACTULOSE
  15. CANDID [Concomitant]
  16. LUMIA 60K [Concomitant]

REACTIONS (1)
  - Hepatic cancer metastatic [Fatal]

NARRATIVE: CASE EVENT DATE: 20220609
